FAERS Safety Report 8330024-3 (Version None)
Quarter: 2012Q2

REPORT INFORMATION
  Report Type: 
  Country: None (occurrence: None)
  Receive Date: 20120502
  Receipt Date: 20120425
  Transmission Date: 20120825
  Serious: Yes (Life-Threatening, Hospitalization, Other)
  Sender: FDA-Public Use
  Company Number: US-BAYER-2012-016204

PATIENT
  Age: 39 Year
  Sex: Female
  Weight: 77.098 kg

DRUGS (15)
  1. THYROID [Concomitant]
     Dosage: 2 GRAINS
     Route: 048
  2. METFORMIN HCL [Concomitant]
     Dosage: 500 MG, QD
     Route: 048
  3. ADDERALL 5 [Concomitant]
     Dosage: 20 MG, UNK
     Route: 048
  4. GLUCOPHAGE [Concomitant]
     Dosage: 500 MG, BID
  5. INDERAL [Concomitant]
  6. YASMIN [Suspect]
     Dosage: UNK
     Dates: start: 20080226, end: 20100325
  7. ZOLOFT [Concomitant]
     Dosage: 1 ? TABLETS
     Route: 048
  8. HYDROCHLOROTHIAZIDE [Concomitant]
     Dosage: 12.5 MG, QD
     Route: 048
  9. THYROID TAB [Concomitant]
     Dosage: 120 MG, UNK
  10. YASMIN [Suspect]
     Indication: CONTRACEPTION
     Dosage: UNK
     Dates: start: 20011011, end: 20030328
  11. VITAMIN B-12 [Concomitant]
  12. YASMIN [Suspect]
     Dosage: UNK
     Dates: start: 20080226, end: 20100325
  13. YAZ [Suspect]
     Indication: CONTRACEPTION
     Dosage: UNK
     Dates: start: 20070220, end: 20100425
  14. WELLBUTRIN [Concomitant]
     Dosage: 100 MG, UNK
     Route: 048
  15. XANAX [Concomitant]
     Dosage: 0.5 MG, PRN
     Route: 048

REACTIONS (2)
  - CEREBROVASCULAR ACCIDENT [None]
  - INJURY [None]
